FAERS Safety Report 21342033 (Version 1)
Quarter: 2022Q3

REPORT INFORMATION
  Report Type: Report from Study
  Country: GB (occurrence: GB)
  Receive Date: 20220916
  Receipt Date: 20220916
  Transmission Date: 20221027
  Serious: Yes (Other)
  Sender: FDA-Public Use
  Company Number: GB-TAKEDA-2022TUS060882

PATIENT
  Age: 59 Year
  Sex: Female

DRUGS (1)
  1. VEDOLIZUMAB [Suspect]
     Active Substance: VEDOLIZUMAB
     Indication: Colitis ulcerative
     Dosage: 108 MILLIGRAM
     Route: 058
     Dates: start: 20220826

REACTIONS (6)
  - Blindness [Unknown]
  - Injection site pain [Unknown]
  - Gastric dilatation [Unknown]
  - Frequent bowel movements [Unknown]
  - Decreased appetite [Unknown]
  - Incorrect dose administered [Unknown]
